FAERS Safety Report 7884950-X (Version None)
Quarter: 2011Q4

REPORT INFORMATION
  Report Type: 
  Country: None (occurrence: None)
  Receive Date: 20111102
  Receipt Date: 20111026
  Transmission Date: 20120403
  Serious: Yes (Other)
  Sender: FDA-Public Use
  Company Number: PHEH2011US05919

PATIENT
  Sex: Female
  Weight: 61.678 kg

DRUGS (11)
  1. DIAZEPAM [Concomitant]
     Dosage: 10 MG, TID
  2. VITAMIN D [Concomitant]
     Dosage: 1000 IU, QD
  3. PROZAC [Concomitant]
     Dosage: 40 MG, QD
  4. LISINOPRIL [Suspect]
     Dosage: 10 MG, BID
  5. DYAZIDE [Concomitant]
     Dosage: 37.5/25 MG, UNK
  6. CARDIZEM LA [Suspect]
     Dosage: UNK UKN, UNK
  7. AMITIZA [Concomitant]
     Dosage: 8 UG, QD
     Route: 048
  8. CLONIDINE HCL [Suspect]
     Dosage: 0.1 MG, UNK
     Route: 048
  9. LOPRESSOR [Concomitant]
     Dosage: 50 MG, UNK
     Route: 048
  10. GILENYA [Suspect]
     Dosage: 0.5 MG, QD
     Route: 048
  11. LEVOTHROID [Suspect]
     Dosage: 300 UG, UNK
     Route: 048

REACTIONS (3)
  - ATRIOVENTRICULAR BLOCK [None]
  - HYPERTENSIVE CRISIS [None]
  - BLOOD PRESSURE INCREASED [None]
